FAERS Safety Report 8525465-5 (Version None)
Quarter: 2012Q3

REPORT INFORMATION
  Report Type: 
  Country: None (occurrence: None)
  Receive Date: 20120720
  Receipt Date: 20120710
  Transmission Date: 20120928
  Serious: Yes (Disabling)
  Sender: FDA-Public Use
  Company Number: FR-009507513-1202FRA00006

PATIENT

DRUGS (6)
  1. IPERTEN [Concomitant]
     Indication: HYPERTENSION
     Dosage: 0.5 MG, QD
     Route: 048
  2. CRESTOR [Concomitant]
     Indication: DYSLIPIDAEMIA
     Dosage: 1.5 UNK, QW
     Route: 048
     Dates: start: 20080101, end: 20110901
  3. NOROXIN [Suspect]
     Indication: CYSTITIS
     Dosage: 400 MG, BID
     Route: 048
     Dates: start: 20110801, end: 20110801
  4. LEVOTHYROXINE SODIUM [Concomitant]
     Indication: THYROID DISORDER
     Dosage: 62.5 U, QD
     Route: 048
  5. CELECTOL [Concomitant]
     Indication: HYPERTENSION
     Dosage: 0.5 MG, QD
     Route: 048
  6. IRBESARTAN AND HYDROCHLOROTHIAZIDE [Concomitant]
     Indication: HYPERTENSION
     Route: 048

REACTIONS (4)
  - MUSCULOSKELETAL PAIN [None]
  - POLYMYALGIA RHEUMATICA [None]
  - RHEUMATOID ARTHRITIS [None]
  - TENDONITIS [None]
